FAERS Safety Report 25648376 (Version 2)
Quarter: 2025Q3

REPORT INFORMATION
  Report Type: Spontaneous
  Country: US (occurrence: US)
  Receive Date: 20250806
  Receipt Date: 20250819
  Transmission Date: 20251020
  Serious: No
  Sender: GLAXOSMITHKLINE
  Company Number: US-GSK-US2025086023

PATIENT
  Age: 61 Year
  Sex: Male

DRUGS (1)
  1. BENLYSTA [Suspect]
     Active Substance: BELIMUMAB
     Indication: Product used for unknown indication
     Dosage: 200 MG, WE

REACTIONS (3)
  - Wrong technique in device usage process [Unknown]
  - Product dose omission issue [Unknown]
  - Product complaint [Unknown]

NARRATIVE: CASE EVENT DATE: 20250704
